FAERS Safety Report 20068070 (Version 1)
Quarter: 2021Q4

REPORT INFORMATION
  Report Type: Spontaneous
  Country: US (occurrence: None)
  Receive Date: 20211112
  Receipt Date: 20211112
  Transmission Date: 20220303
  Serious: Yes (Hospitalization)
  Sender: FDA-Public Use
  Company Number: None

PATIENT
  Age: 18 Year
  Sex: Female

DRUGS (10)
  1. PULMOZYME [Suspect]
     Active Substance: DORNASE ALFA
     Route: 055
  2. ALBUTEROL TAB [Concomitant]
  3. ALTERA [Concomitant]
  4. AZITHROMYCIN [Concomitant]
     Active Substance: AZITHROMYCIN
  5. CAYSTON [Concomitant]
     Active Substance: AZTREONAM
  6. CREON CAP [Concomitant]
  7. PARI ALTERA NEBULIZER HAN [Concomitant]
  8. PREDNISONE TAB 10 MG [Concomitant]
  9. PULMOZYME SOL [Concomitant]
  10. TOBRAMYCIN [Concomitant]
     Active Substance: TOBRAMYCIN

REACTIONS (2)
  - Cystic fibrosis [None]
  - Condition aggravated [None]

NARRATIVE: CASE EVENT DATE: 20211108
